FAERS Safety Report 8513617-X (Version None)
Quarter: 2012Q3

REPORT INFORMATION
  Report Type: 
  Country: None (occurrence: None)
  Receive Date: 20120717
  Receipt Date: 20120716
  Transmission Date: 20120928
  Serious: No
  Sender: FDA-Public Use
  Company Number: US-PFIZER INC-2012171235

PATIENT
  Sex: Female
  Weight: 65.76 kg

DRUGS (7)
  1. LEVOTHYROXINE [Concomitant]
     Dosage: UNK
  2. METOPROLOL [Concomitant]
     Dosage: UNK
  3. CHANTIX [Suspect]
     Indication: SMOKING CESSATION THERAPY
     Dosage: 0.5 MG, 1X/DAY
     Route: 048
  4. SYNTHROID [Concomitant]
     Dosage: UNK
  5. CHANTIX [Suspect]
     Dosage: UNK
     Route: 048
  6. PLAVIX [Concomitant]
     Dosage: UNK
  7. ASPIRIN [Concomitant]
     Dosage: UNK

REACTIONS (1)
  - TOBACCO USER [None]
